FAERS Safety Report 20700140 (Version 2)
Quarter: 2022Q2

REPORT INFORMATION
  Report Type: Report from Study
  Country: US (occurrence: None)
  Receive Date: 20220412
  Receipt Date: 20220413
  Transmission Date: 20220721
  Serious: Yes (Hospitalization)
  Sender: FDA-Public Use
  Company Number: US-ROCHE-3048182

PATIENT
  Age: 81 Year
  Sex: Male
  Weight: 71.7 kg

DRUGS (6)
  1. OBINUTUZUMAB [Suspect]
     Active Substance: OBINUTUZUMAB
     Indication: Chronic lymphocytic leukaemia
     Route: 042
     Dates: start: 20210804, end: 20211222
  2. OBINUTUZUMAB [Suspect]
     Active Substance: OBINUTUZUMAB
     Dosage: LAST ADMIN DATE OF IND ON 22/DEC/2021, OBINUTUZUMAB (GAZYVA):100MG IV ON C1D1,900MG IV ONC1D2,1000MG
     Route: 042
     Dates: start: 20210804
  3. IBRUTINIB [Suspect]
     Active Substance: IBRUTINIB
     Indication: Chronic lymphocytic leukaemia
     Route: 065
     Dates: start: 20210804, end: 20220201
  4. IBRUTINIB [Suspect]
     Active Substance: IBRUTINIB
     Dosage: LAST ADMIN DATE OF IND ON 01/FEB/2022, CYCLE 28 DAYS IBRUTINIB (PCI-32765): 420MG PO QD FOR 15CYCLES
     Route: 048
     Dates: start: 20210804
  5. VENETOCLAX [Suspect]
     Active Substance: VENETOCLAX
     Indication: Chronic lymphocytic leukaemia
     Dosage: LAST ADMINISTERED DATE 29/SEP/2021
     Route: 065
     Dates: start: 20210929
  6. VENETOCLAX [Suspect]
     Active Substance: VENETOCLAX
     Dosage: LAST ADMIN DATE OF IND ON 02/FEB/2022, VENETOCLAX (ABT-199): 20MG PO QD DAYS1-7CYCLE3, 50MGPO QD DAY
     Route: 048
     Dates: start: 20210804

REACTIONS (2)
  - Diarrhoea [Recovered/Resolved]
  - Weight decreased [Recovered/Resolved]

NARRATIVE: CASE EVENT DATE: 20220202
